FAERS Safety Report 8695858 (Version 2)
Quarter: 2012Q4

REPORT INFORMATION
  Report Type: 
  Country: GB (occurrence: GB)
  Receive Date: 20120801
  Receipt Date: 20120920
  Transmission Date: 20130627
  Serious: Yes (Disabling)
  Sender: FDA-Public Use
  Company Number: GB-MYLANLABS-2012S1014773

PATIENT
  Age: 72 Year
  Sex: Female
  Weight: 71 kg

DRUGS (4)
  1. TERBINAFINE [Suspect]
     Indication: ONYCHOMYCOSIS
     Route: 048
     Dates: start: 20120601, end: 20120618
  2. OMEPRAZOLE [Concomitant]
     Indication: PRODUCT USED FOR UNKNOWN INDICATION
  3. RALOXIFENE [Concomitant]
     Indication: PRODUCT USED FOR UNKNOWN INDICATION
  4. TOLTERODINE [Concomitant]
     Indication: PRODUCT USED FOR UNKNOWN INDICATION

REACTIONS (6)
  - Acute generalised exanthematous pustulosis [Recovered/Resolved]
  - Skin exfoliation [Recovered/Resolved]
  - Insomnia [Recovered/Resolved]
  - Erythema [Recovered/Resolved]
  - Pruritus [Recovered/Resolved]
  - Rash pustular [Recovered/Resolved]
